FAERS Safety Report 6369159-3 (Version None)
Quarter: 2009Q3

REPORT INFORMATION
  Report Type: 
  Country: None (occurrence: None)
  Receive Date: 20090918
  Receipt Date: 20090918
  Transmission Date: 20100115
  Serious: Yes (Other)
  Sender: FDA-Public Use
  Company Number: None

PATIENT
  Age: 32 Year
  Sex: Male
  Weight: 109 kg

DRUGS (13)
  1. DEPACON [Suspect]
     Dosage: BOLUS:15MG/KG,1635 MG/100
     Dates: start: 20090827
  2. DEPACON [Suspect]
     Dosage: MAINT: 1000MH/250 ML
     Dates: start: 20090827
  3. INTRAOPERATIVE AGENTS GIVEN: VERSED [Concomitant]
  4. VENTANYL [Concomitant]
  5. PROPOFOL [Concomitant]
  6. PANCURONIUM [Concomitant]
  7. HEPARIN [Concomitant]
  8. AMICAR [Concomitant]
  9. ISOFLURANE [Concomitant]
  10. VASOPRESSIN [Concomitant]
  11. AMIODARONE HCL [Concomitant]
  12. ESMOLOL HCL [Concomitant]
  13. INSULIN [Concomitant]

REACTIONS (4)
  - ACIDOSIS [None]
  - HAEMODYNAMIC INSTABILITY [None]
  - PROCEDURAL COMPLICATION [None]
  - VENTRICULAR FIBRILLATION [None]
